FAERS Safety Report 15655474 (Version 2)
Quarter: 2018Q4

REPORT INFORMATION
  Report Type: Report from Study
  Country: CA (occurrence: CA)
  Receive Date: 20181126
  Receipt Date: 20181127
  Transmission Date: 20190205
  Serious: Yes (Hospitalization)
  Sender: FDA-Public Use
  Company Number: CA-TEVA-2018-CA-980365

PATIENT
  Age: 14 Year
  Sex: Female
  Weight: 58 kg

DRUGS (5)
  1. HYDROMORPHONE [Suspect]
     Active Substance: HYDROMORPHONE
     Indication: SICKLE CELL ANAEMIA WITH CRISIS
     Route: 048
  2. ACETAMINOPHEN. [Concomitant]
     Active Substance: ACETAMINOPHEN
     Indication: SICKLE CELL ANAEMIA WITH CRISIS
     Route: 048
  3. IBUPROFEN. [Concomitant]
     Active Substance: IBUPROFEN
     Indication: SICKLE CELL ANAEMIA WITH CRISIS
     Dosage: 1600 MILLIGRAM DAILY;
     Route: 042
  4. FOLIC ACID. [Concomitant]
     Active Substance: FOLIC ACID
     Indication: SICKLE CELL ANAEMIA WITH CRISIS
     Dosage: 1 MILLIGRAM DAILY;
     Route: 048
  5. MIRVALA 28 [Concomitant]
     Indication: CONTRACEPTION
     Route: 048

REACTIONS (2)
  - Constipation [Recovered/Resolved]
  - Drug intolerance [Recovered/Resolved]
